FAERS Safety Report 15301476 (Version 3)
Quarter: 2018Q3

REPORT INFORMATION
  Report Type: Spontaneous
  Country: US (occurrence: US)
  Receive Date: 20180821
  Receipt Date: 20180913
  Transmission Date: 20181010
  Serious: No
  Sender: FDA-Public Use
  Company Number: US-SA-2018SA225891

PATIENT
  Age: 63 Year
  Sex: Male

DRUGS (1)
  1. LANTUS [Suspect]
     Active Substance: INSULIN GLARGINE
     Indication: DIABETES MELLITUS
     Dosage: 14 UNITS NIGHTLY AT 9 PM

REACTIONS (4)
  - Device issue [Unknown]
  - Device operational issue [Unknown]
  - Blood glucose increased [Recovered/Resolved]
  - Drug dose omission by device [Unknown]
